FAERS Safety Report 6570554 (Version 3)
Quarter: 2013Q4

REPORT INFORMATION
  Report Type: Spontaneous
  Country: US (occurrence: US)
  Receive Date: 20080305
  Receipt Date: 20131120
  Transmission Date: 20140711
  Serious: Yes (Other)
  Sender: FDA-Public Use
  Company Number: US-GILEAD-2008-0014778

PATIENT
  Age: 55 Year
  Sex: Male
  Weight: 86.18 kg

DRUGS (16)
  1. LETAIRIS [Suspect]
     Indication: PULMONARY ARTERIAL HYPERTENSION
     Route: 048
     Dates: start: 20080430
  2. LETAIRIS [Suspect]
     Route: 048
     Dates: start: 20070907, end: 20071025
  3. OXYGEN [Concomitant]
     Indication: PULMONARY ARTERIAL HYPERTENSION
     Route: 045
  4. VIAGRA [Concomitant]
     Indication: PULMONARY ARTERIAL HYPERTENSION
     Route: 048
  5. LASIX [Concomitant]
     Indication: PULMONARY ARTERIAL HYPERTENSION
     Route: 048
  6. DIGOXIN [Concomitant]
     Indication: ESSENTIAL HYPERTENSION
     Route: 048
  7. K-DUR [Concomitant]
     Indication: SUPPLEMENTATION THERAPY
     Route: 048
  8. WARFARIN [Concomitant]
     Indication: ANTICOAGULANT THERAPY
     Dosage: M-F
     Route: 048
  9. WARFARIN [Concomitant]
     Dosage: SA/SUN
     Route: 048
  10. TEMAZAPAM [Concomitant]
     Indication: DEPRESSION
  11. ADVAIR [Concomitant]
     Indication: ASTHMA
     Route: 055
  12. FLUTICASONE [Concomitant]
     Route: 055
  13. ALLEGRA [Concomitant]
     Route: 048
  14. CHLORPHENIRAMINE [Concomitant]
     Route: 048
  15. SPIRONOLACTONE [Concomitant]
     Route: 048
  16. ALBUTEROL [Concomitant]
     Route: 055

REACTIONS (1)
  - Liver function test abnormal [Recovered/Resolved]
